FAERS Safety Report 19714586 (Version 1)
Quarter: 2021Q3

REPORT INFORMATION
  Report Type: Spontaneous
  Country: US (occurrence: US)
  Receive Date: 20210818
  Receipt Date: 20210818
  Transmission Date: 20211014
  Serious: No
  Sender: FDA-Public Use
  Company Number: None

PATIENT
  Age: 74 Year
  Sex: Female
  Weight: 64.8 kg

DRUGS (1)
  1. ALENDRONATE SODIUM TABLETS, USP [Suspect]
     Active Substance: ALENDRONATE SODIUM
     Indication: BONE LOSS
     Dosage: ?          QUANTITY:4 TABLET(S);OTHER FREQUENCY:1 PER WEEK;?
     Route: 048
     Dates: start: 20210809, end: 20210816

REACTIONS (2)
  - Arthralgia [None]
  - Joint swelling [None]

NARRATIVE: CASE EVENT DATE: 20210817
